FAERS Safety Report 10021259 (Version 1)
Quarter: 2014Q1

REPORT INFORMATION
  Report Type: Spontaneous
  Country: None (occurrence: None)
  Receive Date: 20140319
  Receipt Date: 20140319
  Transmission Date: 20141002
  Serious: Yes (Hospitalization)
  Sender: FDA-Public Use
  Company Number: None

PATIENT
  Age: 33 Year
  Sex: Female

DRUGS (1)
  1. TOPICAL PAIN CREAM TOWN AND COUNTY [Suspect]
     Indication: PAIN
     Dosage: 1 PUMP TOPICAL

REACTIONS (3)
  - Incorrect route of drug administration [None]
  - Depressed level of consciousness [None]
  - Intentional drug misuse [None]
